FAERS Safety Report 9368550 (Version 1)
Quarter: 2013Q2

REPORT INFORMATION
  Report Type: Spontaneous
  Country: US (occurrence: US)
  Receive Date: 20130626
  Receipt Date: 20130626
  Transmission Date: 20140414
  Serious: No
  Sender: FDA-Public Use
  Company Number: US-009507513-1306USA008892

PATIENT
  Age: 35 Year
  Sex: Female
  Weight: 68.27 kg

DRUGS (11)
  1. NEXPLANON [Suspect]
     Indication: CONTRACEPTION
     Dosage: 1 ROD, UNK
     Route: 059
     Dates: start: 20130517
  2. TOPAMAX [Concomitant]
  3. IMITREX (SUMATRIPTAN) [Concomitant]
  4. SILENOR [Concomitant]
  5. NAPROXEN [Concomitant]
  6. LYRICA [Concomitant]
  7. CYMBALTA [Concomitant]
  8. DIVALPROEX SODIUM [Concomitant]
  9. ASPIRIN [Concomitant]
  10. AMITRIPTYLINE HYDROCHLORIDE [Concomitant]
  11. BENADRYL [Concomitant]

REACTIONS (3)
  - Implant site pain [Recovered/Resolved]
  - Device deployment issue [Not Recovered/Not Resolved]
  - Medical device discomfort [Recovered/Resolved]
